FAERS Safety Report 20967311 (Version 2)
Quarter: 2022Q2

REPORT INFORMATION
  Report Type: Report from Study
  Country: US (occurrence: US)
  Receive Date: 20220616
  Receipt Date: 20220622
  Transmission Date: 20220720
  Serious: No
  Sender: FDA-Public Use
  Company Number: US-AMGEN-USASL2020209980

PATIENT
  Age: 45 Year
  Sex: Male

DRUGS (1)
  1. ENBREL [Suspect]
     Active Substance: ETANERCEPT
     Indication: Rheumatoid arthritis
     Dosage: 50 MILLIGRAM, QWK
     Route: 065

REACTIONS (2)
  - Drug dose omission by device [Unknown]
  - Device physical property issue [Unknown]

NARRATIVE: CASE EVENT DATE: 20201101
